FAERS Safety Report 6999994-X (Version None)
Quarter: 2010Q3

REPORT INFORMATION
  Report Type: 
  Country: None (occurrence: None)
  Receive Date: 20100920
  Receipt Date: 20071002
  Transmission Date: 20110219
  Serious: No
  Sender: FDA-Public Use
  Company Number: US-ASTRAZENECA-2006UW23197

PATIENT
  Age: 37 Year
  Sex: Female
  Weight: 56.7 kg

DRUGS (5)
  1. SEROQUEL [Suspect]
     Indication: BIPOLAR DISORDER
     Route: 048
     Dates: start: 20040101, end: 20060101
  2. SEROQUEL [Suspect]
     Dosage: 100 MG HALF AT NIGHT
     Route: 048
     Dates: start: 20040614
  3. TRAZODONE HCL [Concomitant]
     Dosage: 50-150 MG
     Route: 048
     Dates: start: 20040413
  4. ALPRAZOLAM [Concomitant]
     Indication: NERVOUSNESS
     Route: 048
     Dates: start: 20041202
  5. EFFEXOR [Concomitant]
     Route: 048
     Dates: start: 20011102

REACTIONS (4)
  - DIABETES MELLITUS [None]
  - HYPERGLYCAEMIA [None]
  - ILL-DEFINED DISORDER [None]
  - TYPE 2 DIABETES MELLITUS [None]
